FAERS Safety Report 4838225-3 (Version None)
Quarter: 2005Q4

REPORT INFORMATION
  Report Type: 
  Country: None (occurrence: None)
  Receive Date: 20051128
  Receipt Date: 20051118
  Transmission Date: 20060501
  Serious: Yes (Other)
  Sender: FDA-Public Use
  Company Number: US-MERCK-0511USA03305

PATIENT
  Age: 65 Year
  Sex: Female

DRUGS (5)
  1. SINGULAIR [Suspect]
     Indication: ASTHMA
     Route: 048
     Dates: start: 20040101, end: 20051007
  2. SINGULAIR [Suspect]
     Indication: HYPERSENSITIVITY
     Route: 048
     Dates: start: 20040101, end: 20051007
  3. ZYRTEC [Concomitant]
     Route: 065
  4. ZOLOFT [Concomitant]
     Route: 065
  5. PROTONIX [Concomitant]
     Route: 065

REACTIONS (9)
  - CORNEAL DISORDER [None]
  - COUGH [None]
  - DIZZINESS [None]
  - EAR PAIN [None]
  - FAECES DISCOLOURED [None]
  - INSOMNIA [None]
  - NAUSEA [None]
  - STOMATITIS [None]
  - THYROID DISORDER [None]
